FAERS Safety Report 7474965-8 (Version None)
Quarter: 2011Q2

REPORT INFORMATION
  Report Type: 
  Country: None (occurrence: None)
  Receive Date: 20110505
  Receipt Date: 20110420
  Transmission Date: 20111010
  Serious: Yes (Hospitalization, Other)
  Sender: FDA-Public Use
  Company Number: AUR-APL-2011-01437

PATIENT
  Age: 83 Year
  Sex: Female

DRUGS (6)
  1. SINTROM [Suspect]
     Dates: start: 20071101, end: 20090907
  2. SIMVASTATIN [Suspect]
     Dosage: 40MG-DAILY
  3. RONAME (GLIMEPIRIDE) [Concomitant]
  4. METFORMIN HCL [Concomitant]
  5. PANTOPRAZOLE [Suspect]
     Dosage: 40MG-DAILY-ORAL
     Route: 048
  6. CLOPIDOGREL [Suspect]

REACTIONS (6)
  - HAEMATURIA [None]
  - FEMUR FRACTURE [None]
  - HAEMATOCRIT DECREASED [None]
  - HEART RATE INCREASED [None]
  - HYDROCEPHALUS [None]
  - DRUG INTERACTION [None]
